FAERS Safety Report 4888565-7 (Version None)
Quarter: 2005Q4

REPORT INFORMATION
  Report Type: 
  Country: None (occurrence: None)
  Receive Date: 20051215
  Receipt Date: 20050318
  Transmission Date: 20060501
  Serious: Yes (Other)
  Sender: FDA-Public Use
  Company Number: 2005023467

PATIENT
  Age: 70 Year
  Sex: Female
  Weight: 49.8957 kg

DRUGS (6)
  1. BEXTRA [Suspect]
     Indication: ARTHRITIS
     Dosage: 20 MG (10 MG,2 IN 1 D),ORAL
     Route: 048
     Dates: start: 20050104, end: 20050121
  2. DILANTIN [Suspect]
     Indication: CONVULSION
     Dosage: 160 MG (160 MG,1 IN 1 D),ORAL
     Route: 048
     Dates: start: 19720101
  3. LIDOCAINE HYDROCHLORIDE [Suspect]
     Indication: FINGER DEFORMITY
     Dates: start: 20050104, end: 20050104
  4. BUPIVACAINE [Suspect]
     Indication: FINGER DEFORMITY
     Dates: start: 20050104, end: 20050104
  5. GLUCOSAMINE (GLUCOSAMINE) [Suspect]
     Indication: FINGER DEFORMITY
     Dosage: ORAL
     Route: 048
     Dates: start: 20050104
  6. CHONDROITIN SULFATE (CHONDROITIN SULFATE) [Suspect]
     Indication: FINGER DEFORMITY
     Dosage: ORAL
     Route: 048
     Dates: start: 20050104

REACTIONS (12)
  - BREAST PAIN [None]
  - CARPAL TUNNEL SYNDROME [None]
  - CONVULSION [None]
  - COSTOCHONDRITIS [None]
  - DRUG INEFFECTIVE [None]
  - FINGER DEFORMITY [None]
  - HYPOAESTHESIA [None]
  - INSOMNIA [None]
  - INTERVERTEBRAL DISC PROTRUSION [None]
  - NERVOUSNESS [None]
  - OSTEOPOROSIS [None]
  - PRECANCEROUS SKIN LESION [None]
